FAERS Safety Report 4412550-2 (Version None)
Quarter: 2004Q2

REPORT INFORMATION
  Report Type: 
  Country: None (occurrence: None)
  Receive Date: 20040630
  Receipt Date: 20040402
  Transmission Date: 20050107
  Serious: No
  Sender: FDA-Public Use
  Company Number: 04P-163-0256096-00

PATIENT
  Age: 43 Year
  Sex: Female
  Weight: 81.6475 kg

DRUGS (8)
  1. HUMIRA [Suspect]
     Indication: SYSTEMIC LUPUS ERYTHEMATOSUS
     Dosage: 40 MG, 1 IN 2 WK, SUBCUTANEOUS
     Route: 058
     Dates: start: 20040401
  2. PREDNISONE [Concomitant]
  3. HYDROXYCHLOROQUINE PHOSPHATE [Concomitant]
  4. MESTION [Concomitant]
  5. BUCINDOLOL HYDROCHLORIDE [Concomitant]
  6. SERTRALINE HYDROCHLORIDE [Concomitant]
  7. TRAZODONE HCL [Concomitant]
  8. LORAZEPAM [Concomitant]

REACTIONS (1)
  - INJECTION SITE BURNING [None]
